FAERS Safety Report 13697957 (Version 2)
Quarter: 2017Q3

REPORT INFORMATION
  Report Type: Spontaneous
  Country: TH (occurrence: TH)
  Receive Date: 20170628
  Receipt Date: 20170707
  Transmission Date: 20171127
  Serious: Yes (Death)
  Sender: FDA-Public Use
  Company Number: TH-BRACCO-000023

PATIENT
  Age: 85 Year
  Sex: Male

DRUGS (3)
  1. NIMODIPINE. [Concomitant]
     Active Substance: NIMODIPINE
     Indication: HYPERTENSION
     Route: 048
  2. IOPAMIRO [Suspect]
     Active Substance: IOPAMIDOL
     Indication: COMPUTERISED TOMOGRAM ABDOMEN
     Route: 048
     Dates: start: 20170622, end: 20170622
  3. IOPAMIRO [Suspect]
     Active Substance: IOPAMIDOL
     Indication: COMPUTERISED TOMOGRAM ABDOMEN
     Route: 042
     Dates: start: 20170622, end: 20170622

REACTIONS (5)
  - Loss of consciousness [Recovering/Resolving]
  - Acute kidney injury [Not Recovered/Not Resolved]
  - Pulse absent [Recovering/Resolving]
  - Vomiting [Recovering/Resolving]
  - Sepsis [Fatal]

NARRATIVE: CASE EVENT DATE: 20170622
